FAERS Safety Report 10735895 (Version 1)
Quarter: 2015Q1

REPORT INFORMATION
  Report Type: Spontaneous
  Country: US (occurrence: None)
  Receive Date: 20150121
  Receipt Date: 20150121
  Transmission Date: 20150721
  Serious: Yes (Death, Hospitalization)
  Sender: FDA-Public Use
  Company Number: INS201501-000008

PATIENT
  Age: 72 Year
  Sex: Male
  Weight: 92.53 kg

DRUGS (6)
  1. FENTANYL PATCH (FENTANYL) (FENTANYL) [Concomitant]
  2. OXYCODONE (OXYCODONE) (OXYCODONE) [Concomitant]
     Active Substance: OXYCODONE
  3. SUBSYS [Suspect]
     Active Substance: FENTANYL
     Indication: BREAKTHROUGH PAIN
     Dosage: 800 MCG, AS NEEDED EVERY TWO HOURS
     Dates: start: 20141224, end: 20141225
  4. PHENOBARBITAL (PHENOBARBITAL) [Concomitant]
     Active Substance: PHENOBARBITAL
  5. MORPHINE CONCENTRATE (MORPHINE) (MORPHINE) [Concomitant]
  6. HALDOL (HALOPERIDOL) (HALOPERIDOL) [Concomitant]

REACTIONS (1)
  - Malignant neoplasm progression [None]

NARRATIVE: CASE EVENT DATE: 20141225
